FAERS Safety Report 20763123 (Version 2)
Quarter: 2022Q3

REPORT INFORMATION
  Report Type: Spontaneous
  Country: US (occurrence: None)
  Receive Date: 20220428
  Receipt Date: 20220728
  Transmission Date: 20221026
  Serious: No
  Sender: FDA-Public Use
  Company Number: US-Ultragenyx Pharmaceutical Inc.-US-UGNX-22-00157

PATIENT
  Age: 0 Year
  Sex: Female
  Weight: 4.99 kg

DRUGS (8)
  1. DOJOLVI [Suspect]
     Active Substance: TRIHEPTANOIN
     Indication: Very long-chain acyl-coenzyme A dehydrogenase deficiency
     Dates: start: 20220118
  2. DOJOLVI [Suspect]
     Active Substance: TRIHEPTANOIN
     Dates: start: 20220312
  3. DOJOLVI [Suspect]
     Active Substance: TRIHEPTANOIN
     Dates: start: 20220316
  4. DOJOLVI [Suspect]
     Active Substance: TRIHEPTANOIN
  5. DOJOLVI [Suspect]
     Active Substance: TRIHEPTANOIN
     Dates: start: 20220219
  6. DOJOLVI [Suspect]
     Active Substance: TRIHEPTANOIN
  7. DOJOLVI [Suspect]
     Active Substance: TRIHEPTANOIN
     Dosage: 4.8 OR 5 ML
     Dates: start: 20220530
  8. DOJOLVI [Suspect]
     Active Substance: TRIHEPTANOIN

REACTIONS (4)
  - Free fatty acids [Not Recovered/Not Resolved]
  - Dry skin [Recovered/Resolved]
  - Faeces soft [Recovering/Resolving]
  - Vomiting [Recovered/Resolved]

NARRATIVE: CASE EVENT DATE: 20220312
